FAERS Safety Report 15374798 (Version 2)
Quarter: 2018Q4

REPORT INFORMATION
  Report Type: Spontaneous
  Country: US (occurrence: US)
  Receive Date: 20180912
  Receipt Date: 20181025
  Transmission Date: 20190204
  Serious: No
  Sender: FDA-Public Use
  Company Number: US-VIFOR (INTERNATIONAL) INC.-VIT-2018-08733

PATIENT
  Sex: Male
  Weight: 60.5 kg

DRUGS (23)
  1. VENOFER [Concomitant]
     Active Substance: IRON SUCROSE
     Indication: PRODUCT USED FOR UNKNOWN INDICATION
     Dosage: ON FIRST SCHEDULED TREATMENT
     Route: 040
     Dates: start: 20180816
  2. HUMALOG [Concomitant]
     Active Substance: INSULIN LISPRO
     Dosage: 5, 5, 6 UNITS
     Route: 058
     Dates: start: 20180514
  3. NEPHROCAPS [Concomitant]
     Active Substance: ASCORBIC ACID\BIOTIN\CYANOCOBALAMIN\FOLIC ACID\NIACIN\PANTOTHENIC ACID\PYRIDOXINE\RIBOFLAVIN\THIAMINE
     Route: 048
     Dates: start: 20161230
  4. ARANESP [Concomitant]
     Active Substance: DARBEPOETIN ALFA
     Dosage: ON FIRST SCHEDULED TREATMENT
     Route: 040
     Dates: start: 20180915
  5. CALCIUM ACETATE. [Concomitant]
     Active Substance: CALCIUM ACETATE
     Route: 048
     Dates: start: 20180806
  6. ALPHAGAN P [Concomitant]
     Active Substance: BRIMONIDINE TARTRATE
     Route: 031
     Dates: start: 20161230
  7. DORZOLAMIDE [Concomitant]
     Active Substance: DORZOLAMIDE
     Route: 031
     Dates: start: 20161230
  8. VELPHORO [Suspect]
     Active Substance: FERRIC OXYHYDROXIDE
     Indication: PRODUCT USED FOR UNKNOWN INDICATION
     Route: 048
  9. VERELAN [Concomitant]
     Active Substance: VERAPAMIL HYDROCHLORIDE
     Route: 048
     Dates: start: 20161230
  10. VELPHORO [Suspect]
     Active Substance: FERRIC OXYHYDROXIDE
     Route: 048
  11. AMLODIPINE [Concomitant]
     Active Substance: AMLODIPINE BESYLATE
     Route: 048
     Dates: start: 20170304
  12. CHLORTHALIDONE. [Concomitant]
     Active Substance: CHLORTHALIDONE
     Route: 048
     Dates: start: 20170304
  13. LUMIGAN [Concomitant]
     Active Substance: BIMATOPROST
     Route: 031
     Dates: start: 20161230
  14. METOPROLOL. [Concomitant]
     Active Substance: METOPROLOL
     Route: 048
     Dates: start: 20161230
  15. VELPHORO [Suspect]
     Active Substance: FERRIC OXYHYDROXIDE
     Route: 048
  16. LANTUS [Concomitant]
     Active Substance: INSULIN GLARGINE
     Route: 058
     Dates: start: 20180514
  17. LASIX [Concomitant]
     Active Substance: FUROSEMIDE
     Route: 048
     Dates: start: 20180304
  18. NOVOLOG [Concomitant]
     Active Substance: INSULIN ASPART
     Dosage: 100 UNITS/ ML
     Route: 058
     Dates: start: 20161230
  19. PRED FORTE [Concomitant]
     Active Substance: PREDNISOLONE ACETATE
     Route: 031
     Dates: start: 20161230
  20. PANTOPRAZOLE [Concomitant]
     Active Substance: PANTOPRAZOLE
     Route: 048
     Dates: start: 20161230
  21. GABAPENTIN. [Concomitant]
     Active Substance: GABAPENTIN
     Route: 048
     Dates: start: 20161230
  22. PARICALCITOL. [Concomitant]
     Active Substance: PARICALCITOL
     Dosage: WITH EVERY SCHEDULED DIALYSIS TREATMENT
     Route: 040
     Dates: start: 20180530
  23. FOLIC ACID. [Concomitant]
     Active Substance: FOLIC ACID
     Route: 048
     Dates: start: 20161230

REACTIONS (3)
  - Incorrect dose administered [Recovering/Resolving]
  - Hypoglycaemia [Recovering/Resolving]
  - Inappropriate schedule of product administration [Unknown]
